FAERS Safety Report 6554932-9 (Version None)
Quarter: 2010Q1

REPORT INFORMATION
  Report Type: 
  Country: None (occurrence: None)
  Receive Date: 20100126
  Receipt Date: 20091230
  Transmission Date: 20100710
  Serious: Yes (Other)
  Sender: FDA-Public Use
  Company Number: 1-21266935

PATIENT
  Sex: Male

DRUGS (2)
  1. FENTANYL-25 [Suspect]
     Indication: CANCER PAIN
     Dosage: 62.5 MCG/HR, TRANSDERMAL
     Route: 062
  2. FENTANYL-50 [Suspect]
     Indication: CANCER PAIN
     Dosage: 50 MCG/HR, TRANSDERMAL
     Route: 062

REACTIONS (4)
  - CONCOMITANT DISEASE AGGRAVATED [None]
  - HYPERHIDROSIS [None]
  - PRODUCT ADHESION ISSUE [None]
  - WRONG TECHNIQUE IN DRUG USAGE PROCESS [None]
